FAERS Safety Report 8011974-4 (Version None)
Quarter: 2011Q4

REPORT INFORMATION
  Report Type: 
  Country: None (occurrence: None)
  Receive Date: 20111228
  Receipt Date: 20111221
  Transmission Date: 20120403
  Serious: Yes (Other)
  Sender: FDA-Public Use
  Company Number: US-GLAXOSMITHKLINE-A0958935A

PATIENT
  Age: 48 Year
  Sex: Male

DRUGS (5)
  1. BEER [Suspect]
     Route: 048
  2. ATENOLOL [Concomitant]
  3. HYDROCHLOROTHIAZIDE [Concomitant]
  4. LAMICTAL [Suspect]
     Indication: CONVULSION
     Dosage: 200MG PER DAY
     Route: 048
     Dates: start: 20110601
  5. LISINOPRIL [Concomitant]

REACTIONS (3)
  - LIP INJURY [None]
  - CONVULSION [None]
  - MYALGIA [None]
